FAERS Safety Report 24395115 (Version 2)
Quarter: 2025Q1

REPORT INFORMATION
  Report Type: Spontaneous
  Country: US (occurrence: US)
  Receive Date: 20241004
  Receipt Date: 20250204
  Transmission Date: 20250409
  Serious: No
  Sender: NOVARTIS
  Company Number: US-002147023-NVSC2024US195312

PATIENT
  Sex: Female

DRUGS (3)
  1. TAFINLAR [Suspect]
     Active Substance: DABRAFENIB MESYLATE
     Indication: Skin cancer
     Dosage: 75 MG, Q12H (2 CAPS)
     Route: 048
     Dates: start: 20230109
  2. TAFINLAR [Suspect]
     Active Substance: DABRAFENIB MESYLATE
     Dosage: 150 MG, Q12H
     Route: 048
     Dates: start: 20240214
  3. MEKINIST [Suspect]
     Active Substance: TRAMETINIB DIMETHYL SULFOXIDE
     Indication: Skin cancer
     Dosage: 2 MG, QD
     Route: 048
     Dates: start: 20230109

REACTIONS (4)
  - Musculoskeletal stiffness [Unknown]
  - Nausea [Unknown]
  - Fatigue [Unknown]
  - Product dose omission issue [Unknown]
